FAERS Safety Report 8787296 (Version 1)
Quarter: 2012Q4

REPORT INFORMATION
  Report Type: Report from Study
  Country: DE (occurrence: DE)
  Receive Date: 20120914
  Receipt Date: 20120914
  Transmission Date: 20130627
  Serious: Yes (Other)
  Sender: FDA-Public Use
  Company Number: DE-BAXTER-2012BAX016381

PATIENT

DRUGS (5)
  1. ADVATE [Suspect]
     Indication: HEMOPHILIA A
     Dates: start: 20120314
  2. ADVATE [Suspect]
     Indication: PROPHYLAXIS
     Dates: start: 20120316
  3. ADVATE [Suspect]
     Dates: start: 20120316
  4. ADVATE [Suspect]
     Dates: start: 20120316
  5. ADVATE [Suspect]
     Dates: start: 20120317

REACTIONS (1)
  - Ankle operation [Unknown]
